FAERS Safety Report 13789996 (Version 8)
Quarter: 2019Q1

REPORT INFORMATION
  Report Type: Spontaneous
  Country: US (occurrence: US)
  Receive Date: 20170725
  Receipt Date: 20190221
  Transmission Date: 20190417
  Serious: Yes (Hospitalization, Other)
  Sender: FDA-Public Use
  Company Number: US-PFIZER INC-2017159317

PATIENT
  Age: 79 Year
  Sex: Female
  Weight: 63.49 kg

DRUGS (21)
  1. LANTUS [Concomitant]
     Active Substance: INSULIN GLARGINE
     Dosage: UNK, (THIS WAS AN EVENING DOSE AND WAS ON A SLIDING SCALE)
  2. VITAMIN C [Concomitant]
     Active Substance: ASCORBIC ACID
     Dosage: 500 MG, DAILY
  3. PREDNISONE. [Concomitant]
     Active Substance: PREDNISONE
     Dosage: 7.5 MG, UNK
     Route: 048
  4. PREDNISONE. [Concomitant]
     Active Substance: PREDNISONE
     Dosage: 2.5 MG, UNK
     Route: 048
  5. TUMS [Concomitant]
     Active Substance: CALCIUM CARBONATE
     Dosage: 1 DF, UNK
  6. XALATAN [Concomitant]
     Active Substance: LATANOPROST
     Dosage: 2 GTT, 1X/DAY (1 DROP IN EACH EYE AT NIGHT)
     Route: 047
  7. PREDNISONE. [Concomitant]
     Active Substance: PREDNISONE
     Indication: RHEUMATOID ARTHRITIS
     Dosage: 12.5 MG, 1X/DAY (QD)
     Route: 048
     Dates: start: 1985
  8. PREDNISONE. [Concomitant]
     Active Substance: PREDNISONE
     Dosage: 10 MG, 1X/DAY (BEDTIME)
     Route: 048
     Dates: start: 20170821
  9. PERCOCET [Concomitant]
     Active Substance: ACETAMINOPHEN\OXYCODONE HYDROCHLORIDE
     Indication: PAIN
     Dosage: 5 MG, UNK
  10. XELJANZ XR [Suspect]
     Active Substance: TOFACITINIB CITRATE
     Indication: RHEUMATOID ARTHRITIS
     Dosage: 11 MG, ALTERNATE DAY/EVERY OTHER DAY
     Route: 048
  11. XELJANZ XR [Suspect]
     Active Substance: TOFACITINIB CITRATE
     Dosage: 11 MG, ONCE A DAY
     Route: 048
     Dates: start: 201712
  12. NOVOLOG [Concomitant]
     Active Substance: INSULIN ASPART
     Indication: DIABETES MELLITUS
     Dosage: THIS WAS A MORNING DOSE AND IT WAS A SLIDING SCALE
  13. VITAMIN D3 [Concomitant]
     Active Substance: CHOLECALCIFEROL
     Indication: OSTEOPENIA
     Dosage: 2000 IU, DAILY
  14. VITAMIN D3 [Concomitant]
     Active Substance: CHOLECALCIFEROL
     Dosage: 3000 IU, UNK
  15. TYLENOL [Concomitant]
     Active Substance: ACETAMINOPHEN
     Indication: PAIN
     Dosage: UNK
  16. XELJANZ XR [Suspect]
     Active Substance: TOFACITINIB CITRATE
     Dosage: 11 MG, ONCE A DAY
     Route: 048
     Dates: start: 20170312, end: 201712
  17. METFORMIN [Concomitant]
     Active Substance: METFORMIN HYDROCHLORIDE
     Dosage: 1000 MG, 2X/DAY
  18. FENTANYL. [Concomitant]
     Active Substance: FENTANYL
     Indication: PAIN
     Dosage: 51 UG, UNK
  19. ACTHAR [Concomitant]
     Active Substance: CORTICOTROPIN
     Indication: RHEUMATOID ARTHRITIS
     Dosage: 80 IU, UNK (Q4DAYS)
  20. CALCIUM 600 [Concomitant]
     Active Substance: CALCIUM
     Dosage: UNK, DAILY
  21. CALCIUM [Concomitant]
     Active Substance: CALCIUM
     Indication: OSTEOPENIA
     Dosage: 1400 MG, 1X/DAY

REACTIONS (13)
  - Decreased immune responsiveness [Unknown]
  - Blood glucose increased [Unknown]
  - Malaise [Unknown]
  - White blood cell count increased [Unknown]
  - Neutrophil count increased [Unknown]
  - Cystitis bacterial [Recovered/Resolved]
  - Product use issue [Unknown]
  - Tooth disorder [Unknown]
  - Diarrhoea [Unknown]
  - Abdominal distension [Unknown]
  - Condition aggravated [Unknown]
  - Osteopenia [Unknown]
  - Swelling [Unknown]

NARRATIVE: CASE EVENT DATE: 20170508
